FAERS Safety Report 5223228-X (Version None)
Quarter: 2007Q1

REPORT INFORMATION
  Report Type: 
  Country: None (occurrence: None)
  Receive Date: 20061201
  Receipt Date: 20060824
  Transmission Date: 20070707
  Serious: No
  Sender: FDA-Public Use
  Company Number: 2005PV005024

PATIENT
  Age: 63 Year
  Sex: Female

DRUGS (4)
  1. BYETTA [Suspect]
     Indication: DIABETES MELLITUS NON-INSULIN-DEPENDENT
     Dosage: SEE IMAGE
     Route: 058
     Dates: start: 20050928, end: 20051028
  2. BYETTA [Suspect]
     Indication: DIABETES MELLITUS NON-INSULIN-DEPENDENT
     Dosage: SEE IMAGE
     Route: 058
     Dates: start: 20051029
  3. AMARYL [Concomitant]
  4. METFORMIN HCL [Concomitant]

REACTIONS (8)
  - COUGH [None]
  - FEELING JITTERY [None]
  - HEADACHE [None]
  - HYPOGLYCAEMIA [None]
  - INJECTION SITE PAIN [None]
  - NAUSEA [None]
  - RETCHING [None]
  - VOMITING [None]
